FAERS Safety Report 23330922 (Version 1)
Quarter: 2023Q4

REPORT INFORMATION
  Report Type: Spontaneous
  Country: US (occurrence: None)
  Receive Date: 20231222
  Receipt Date: 20231222
  Transmission Date: 20240109
  Serious: Yes (Hospitalization)
  Sender: FDA-Public Use
  Company Number: US-FARMAPROD-202312-3667

PATIENT
  Sex: Male

DRUGS (9)
  1. OXERVATE [Suspect]
     Active Substance: CENEGERMIN-BKBJ
     Indication: Ulcerative keratitis
     Route: 047
     Dates: start: 20231117
  2. OXERVATE [Suspect]
     Active Substance: CENEGERMIN-BKBJ
     Indication: Ophthalmic herpes zoster
  3. PREDNISOLONE ACETATE [Concomitant]
     Active Substance: PREDNISOLONE ACETATE
     Dates: start: 20230915
  4. OFLOXACIN [Concomitant]
     Active Substance: OFLOXACIN
     Dates: start: 20230802
  5. ERYTHROMYCIN [Concomitant]
     Active Substance: ERYTHROMYCIN
     Dates: start: 20231215
  6. VALACYCLOVIR [Concomitant]
     Active Substance: VALACYCLOVIR HYDROCHLORIDE
     Dates: start: 20230630
  7. OXYCODONE HYDROCHLORIDE [Concomitant]
     Active Substance: OXYCODONE HYDROCHLORIDE
  8. LATANOPROST [Concomitant]
     Active Substance: LATANOPROST
     Dates: start: 20230517
  9. ARTIFICIAL TEARS [Concomitant]
     Dosage: 3-4 TIMES DAILY
     Dates: start: 20230512

REACTIONS (5)
  - Hospitalisation [Unknown]
  - Ocular hyperaemia [None]
  - Eye irritation [None]
  - Vision blurred [None]
  - Inappropriate schedule of product administration [None]
